FAERS Safety Report 19163880 (Version 1)
Quarter: 2021Q2

REPORT INFORMATION
  Report Type: Spontaneous
  Country: ES (occurrence: ES)
  Receive Date: 20210421
  Receipt Date: 20210421
  Transmission Date: 20210717
  Serious: Yes (Hospitalization)
  Sender: FDA-Public Use
  Company Number: ES-MYLANLABS-2021M1023790

PATIENT
  Age: 48 Year
  Sex: Female

DRUGS (7)
  1. CLINDAMYCIN. [Suspect]
     Active Substance: CLINDAMYCIN
     Indication: PERIPHERAL ISCHAEMIA
     Dosage: 300 MILLIGRAM, BID
     Route: 065
  2. NITROGLYCERIN. [Suspect]
     Active Substance: NITROGLYCERIN
     Indication: PERIPHERAL ISCHAEMIA
     Dosage: UNK
     Route: 061
  3. CIPROFLOXACIN. [Suspect]
     Active Substance: CIPROFLOXACIN
     Indication: PERIPHERAL ISCHAEMIA
     Dosage: 500 MILLIGRAM, BID
     Route: 065
  4. NIFEDIPINE. [Suspect]
     Active Substance: NIFEDIPINE
     Indication: PERIPHERAL ISCHAEMIA
     Dosage: 10 MILLIGRAM, Q8H
     Route: 065
  5. AMLODIPINE [Suspect]
     Active Substance: AMLODIPINE BESYLATE
     Indication: PERIPHERAL ISCHAEMIA
     Dosage: 10 MILLIGRAM, BID
     Route: 065
  6. ACETYLSALICYLIC ACID [Suspect]
     Active Substance: ASPIRIN
     Indication: PERIPHERAL ISCHAEMIA
     Dosage: 100 MILLIGRAM, QD
     Route: 065
  7. NIFEDIPINE. [Suspect]
     Active Substance: NIFEDIPINE
     Dosage: 10 MILLIGRAM, QD
     Route: 065

REACTIONS (2)
  - Drug ineffective [Unknown]
  - Off label use [Unknown]
